FAERS Safety Report 18473170 (Version 1)
Quarter: 2020Q4

REPORT INFORMATION
  Report Type: Spontaneous
  Country: US (occurrence: US)
  Receive Date: 20201106
  Receipt Date: 20201106
  Transmission Date: 20210114
  Serious: No
  Sender: FDA-Public Use
  Company Number: NVSC2020US295568

PATIENT
  Sex: Female

DRUGS (1)
  1. PROMACTA [Suspect]
     Active Substance: ELTROMBOPAG OLAMINE
     Indication: IMMUNE THROMBOCYTOPENIA
     Dosage: 37.5 MG, QD
     Route: 048
     Dates: start: 20200211

REACTIONS (5)
  - Flatulence [Unknown]
  - Abdominal pain upper [Unknown]
  - Dizziness [Unknown]
  - Constipation [Unknown]
  - Tinnitus [Recovered/Resolved]
